FAERS Safety Report 6177923-9 (Version None)
Quarter: 2009Q2

REPORT INFORMATION
  Report Type: 
  Country: None (occurrence: None)
  Receive Date: 20090501
  Receipt Date: 20090501
  Transmission Date: 20091009
  Serious: Yes (Life-Threatening)
  Sender: FDA-Public Use
  Company Number: None

PATIENT
  Sex: Male
  Weight: 94.18 kg

DRUGS (12)
  1. METOPROLOL TARTRATE [Suspect]
     Dosage: 50MG TABLET 50 MG BID ORAL
     Route: 048
     Dates: start: 20090320, end: 20090430
  2. ASPIRIN [Concomitant]
  3. AVELOX [Concomitant]
  4. DESOWEN [Concomitant]
  5. DOVONEX [Concomitant]
  6. FLUTICASONE PROPIONATE [Concomitant]
  7. FOLIC ACID [Concomitant]
  8. LIPITOR [Concomitant]
  9. PRILOSEC OTC [Concomitant]
  10. TNG [Concomitant]
  11. UTRAVATE [Concomitant]
  12. ZITHROMAX [Concomitant]

REACTIONS (2)
  - DRUG INTOLERANCE [None]
  - GASTROINTESTINAL DISORDER [None]
